FAERS Safety Report 9929480 (Version 2)
Quarter: 2015Q2

REPORT INFORMATION
  Report Type: Spontaneous
  Country: JP (occurrence: JP)
  Receive Date: 20140227
  Receipt Date: 20150526
  Transmission Date: 20150821
  Serious: Yes (Other)
  Sender: FDA-Public Use
  Company Number: PHHY2014JP022618

PATIENT
  Age: 61 Year
  Sex: Male

DRUGS (2)
  1. 5-FLUOROURACIL [Suspect]
     Active Substance: FLUOROURACIL
     Indication: CHEMOTHERAPY
     Dosage: 800 MG/M2, FOR 5 DAYS
     Route: 042
  2. NEDAPLATIN [Suspect]
     Active Substance: NEDAPLATIN
     Indication: CHEMOTHERAPY
     Dosage: 90 MG/M2, UNK
     Route: 042

REACTIONS (7)
  - Altered state of consciousness [Recovered/Resolved]
  - Leukoencephalopathy [Recovered/Resolved]
  - Dysarthria [Recovered/Resolved]
  - Hemiplegia [Recovered/Resolved]
  - Somnolence [Recovered/Resolved]
  - Gaze palsy [Recovered/Resolved]
  - Speech disorder [Recovered/Resolved]
